FAERS Safety Report 7804373-9 (Version None)
Quarter: 2011Q4

REPORT INFORMATION
  Report Type: 
  Country: None (occurrence: None)
  Receive Date: 20111010
  Receipt Date: 20110927
  Transmission Date: 20120403
  Serious: Yes (Hospitalization, Other)
  Sender: FDA-Public Use
  Company Number: US-ELI_LILLY_AND_COMPANY-US201109008685

PATIENT
  Sex: Female

DRUGS (3)
  1. PHENOBARBITAL TAB [Concomitant]
  2. LASIX [Concomitant]
  3. FORTEO [Suspect]
     Indication: OSTEOPOROSIS
     Dosage: 20 UG, QD
     Route: 065
     Dates: start: 20100501

REACTIONS (2)
  - FALL [None]
  - HIP FRACTURE [None]
